FAERS Safety Report 19801626 (Version 1)
Quarter: 2021Q3

REPORT INFORMATION
  Report Type: Spontaneous
  Country: GB (occurrence: GB)
  Receive Date: 20210908
  Receipt Date: 20210908
  Transmission Date: 20211014
  Serious: Yes (Other)
  Sender: FDA-Public Use
  Company Number: GB-TEVA-2021-GB-1948789

PATIENT
  Age: 92 Year
  Sex: Female

DRUGS (17)
  1. GLICLAZIDE [Concomitant]
     Active Substance: GLICLAZIDE
     Indication: ILL-DEFINED DISORDER
  2. PARACETAMOL [Concomitant]
     Active Substance: ACETAMINOPHEN
     Indication: ILL-DEFINED DISORDER
  3. CODEINE [Concomitant]
     Active Substance: CODEINE
     Indication: ILL-DEFINED DISORDER
  4. FOLIC ACID. [Concomitant]
     Active Substance: FOLIC ACID
     Indication: ILL-DEFINED DISORDER
  5. FUROSEMIDE. [Concomitant]
     Active Substance: FUROSEMIDE
     Indication: ILL-DEFINED DISORDER
  6. COLECALCIFEROL [Concomitant]
     Active Substance: CHOLECALCIFEROL
     Indication: ILL-DEFINED DISORDER
  7. GABAPENTIN. [Concomitant]
     Active Substance: GABAPENTIN
     Indication: ILL-DEFINED DISORDER
  8. TINZAPARIN SODIUM [Concomitant]
     Active Substance: TINZAPARIN SODIUM
     Indication: ILL-DEFINED DISORDER
  9. SIMVASTATIN. [Concomitant]
     Active Substance: SIMVASTATIN
     Indication: ILL-DEFINED DISORDER
  10. RABEPRAZOLE SODIUM. [Concomitant]
     Active Substance: RABEPRAZOLE SODIUM
     Indication: ILL-DEFINED DISORDER
  11. CITALOPRAM [Concomitant]
     Active Substance: CITALOPRAM HYDROBROMIDE
     Indication: ILL-DEFINED DISORDER
  12. FERROUS SULFATE. [Concomitant]
     Active Substance: FERROUS SULFATE
     Indication: ILL-DEFINED DISORDER
  13. IBUPROFEN. [Concomitant]
     Active Substance: IBUPROFEN
     Indication: ILL-DEFINED DISORDER
  14. METFORMIN HYDROCHLORIDE. [Concomitant]
     Active Substance: METFORMIN HYDROCHLORIDE
     Indication: ILL-DEFINED DISORDER
  15. ALENDRONIC ACID [Suspect]
     Active Substance: ALENDRONIC ACID
     Indication: OSTEOPOROTIC FRACTURE
     Dosage: 70MG WEEKLY
     Route: 048
     Dates: start: 20210826, end: 20210827
  16. ASPIRIN. [Concomitant]
     Active Substance: ASPIRIN
     Indication: ILL-DEFINED DISORDER
  17. GLYCERYL TRINITRATE [Concomitant]
     Active Substance: NITROGLYCERIN
     Indication: ILL-DEFINED DISORDER

REACTIONS (1)
  - Upper gastrointestinal haemorrhage [Recovering/Resolving]

NARRATIVE: CASE EVENT DATE: 20210826
